FAERS Safety Report 5535023-2 (Version None)
Quarter: 2007Q4

REPORT INFORMATION
  Report Type: 
  Country: None (occurrence: None)
  Receive Date: 20071203
  Receipt Date: 20050104
  Transmission Date: 20080405
  Serious: Yes (Life-Threatening, Hospitalization)
  Sender: FDA-Public Use
  Company Number: 20074293

PATIENT
  Age: 8 Year
  Sex: Male

DRUGS (1)
  1. LIORESAL [Suspect]
     Indication: MUSCLE SPASTICITY
     Dosage: 190 MCG, EVERY 6 HOURS, INTRATHECAL
     Route: 039

REACTIONS (5)
  - ARNOLD-CHIARI MALFORMATION [None]
  - DROOLING [None]
  - DYSARTHRIA [None]
  - FACIAL PALSY [None]
  - FACIAL PARESIS [None]
